FAERS Safety Report 22012431 (Version 2)
Quarter: 2023Q1

REPORT INFORMATION
  Report Type: Spontaneous
  Country: US (occurrence: US)
  Receive Date: 20230220
  Receipt Date: 20230220
  Transmission Date: 20230418
  Serious: Yes (Other)
  Sender: FDA-Public Use
  Company Number: US-ALLERGAN-2301312US

PATIENT

DRUGS (2)
  1. OZURDEX [Suspect]
     Active Substance: DEXAMETHASONE
     Indication: Macular oedema
     Dosage: UNK UNK, SINGLE
     Route: 031
     Dates: start: 20230105, end: 20230105
  2. OZURDEX [Suspect]
     Active Substance: DEXAMETHASONE
     Indication: Macular oedema
     Dosage: 0.7 MG, SINGLE
     Route: 031

REACTIONS (5)
  - Endophthalmitis [Unknown]
  - Visual impairment [Not Recovered/Not Resolved]
  - Eye pain [Recovering/Resolving]
  - Device issue [Unknown]
  - Product quality issue [Unknown]

NARRATIVE: CASE EVENT DATE: 20230109
